FAERS Safety Report 5839235-X (Version None)
Quarter: 2008Q3

REPORT INFORMATION
  Report Type: 
  Country: None (occurrence: None)
  Receive Date: 20080808
  Receipt Date: 20080801
  Transmission Date: 20090109
  Serious: Yes (Hospitalization)
  Sender: FDA-Public Use
  Company Number: US-GENENTECH-264182

PATIENT
  Sex: Female

DRUGS (8)
  1. RITUXAN [Suspect]
     Indication: SYSTEMIC LUPUS ERYTHEMATOSUS
     Dosage: 1000 MG, Q6M
     Route: 042
  2. RITUXAN [Suspect]
     Dosage: 2000 MG, Q4M
  3. SOLU-MEDROL [Concomitant]
     Indication: PREMEDICATION
  4. PLAQUENIL [Concomitant]
     Indication: DRUG USE FOR UNKNOWN INDICATION
  5. LYRICA [Concomitant]
     Indication: DRUG USE FOR UNKNOWN INDICATION
  6. PREDNISONE [Concomitant]
     Indication: DRUG USE FOR UNKNOWN INDICATION
  7. LEXAPRO [Concomitant]
     Indication: DRUG USE FOR UNKNOWN INDICATION
  8. CELEBREX [Concomitant]
     Indication: DRUG USE FOR UNKNOWN INDICATION

REACTIONS (4)
  - FASCIITIS [None]
  - MYELITIS TRANSVERSE [None]
  - PULMONARY OEDEMA [None]
  - VASCULITIS [None]
